FAERS Safety Report 5846742-2 (Version None)
Quarter: 2008Q3

REPORT INFORMATION
  Report Type: 
  Country: None (occurrence: None)
  Receive Date: 20080815
  Receipt Date: 20080807
  Transmission Date: 20090109
  Serious: Yes (Hospitalization)
  Sender: FDA-Public Use
  Company Number: TW-BRISTOL-MYERS SQUIBB COMPANY-14245351

PATIENT
  Age: 32 Year
  Sex: Male

DRUGS (6)
  1. ABILIFY [Suspect]
     Indication: SCHIZOPHRENIA
     Dosage: 16AUG-22OCT07-15MG;23OCT-03DEC07,16DEC07-12FEB08,26MAR-15JUN08-20MG;04-15DEC07;13FEB-15MAR08-30MG;
     Route: 048
     Dates: start: 20080616
  2. FLUDIAZEPAM [Concomitant]
     Dosage: FORM TABLET
     Dates: start: 20070516
  3. MAGNESIUM OXIDE [Concomitant]
     Dosage: FORM TABLET
     Dates: start: 20070402, end: 20080711
  4. TRIHEXYPHENIDYL HCL [Concomitant]
     Dosage: FORM TABLET.
     Dates: start: 20080102
  5. PROPRANOLOL [Concomitant]
     Dosage: FORM TABLET.
     Dates: start: 20080312
  6. LORAZEPAM [Concomitant]
     Dosage: FORM TABLET.
     Dates: start: 20080423, end: 20080722

REACTIONS (2)
  - HALLUCINATION, AUDITORY [None]
  - PERSECUTORY DELUSION [None]
